FAERS Safety Report 13185239 (Version 5)
Quarter: 2017Q1

REPORT INFORMATION
  Report Type: Spontaneous
  Country: CH (occurrence: CH)
  Receive Date: 20170203
  Receipt Date: 20170310
  Transmission Date: 20170428
  Serious: Yes (Hospitalization, Other)
  Sender: FDA-Public Use
  Company Number: CH-SAOL THERAPEUTICS-2017SAO00211

PATIENT
  Age: 20 Year
  Sex: Female

DRUGS (3)
  1. BACLOFEN. [Suspect]
     Active Substance: BACLOFEN
     Dosage: 1552 ?G, \DAY
     Route: 037
     Dates: start: 20170206
  2. BACLOFEN. [Suspect]
     Active Substance: BACLOFEN
     Dosage: 96 ?G, \DAY
     Route: 037
     Dates: start: 20170216
  3. BACLOFEN. [Suspect]
     Active Substance: BACLOFEN
     Indication: CEREBRAL PALSY
     Dosage: 2006.7 ?G, \DAY
     Route: 037
     Dates: start: 20170117, end: 20170206

REACTIONS (5)
  - Complication associated with device [Recovered/Resolved]
  - Device failure [Not Recovered/Not Resolved]
  - Myoclonus [Recovered/Resolved]
  - Pneumonia [Unknown]
  - Muscle spasticity [Recovered/Resolved]

NARRATIVE: CASE EVENT DATE: 20170126
